FAERS Safety Report 21223326 (Version 2)
Quarter: 2022Q3

REPORT INFORMATION
  Report Type: Spontaneous
  Country: US (occurrence: US)
  Receive Date: 20220817
  Receipt Date: 20220902
  Transmission Date: 20221026
  Serious: Yes (Hospitalization, Other)
  Sender: FDA-Public Use
  Company Number: US-ORGANON-O2208USA001339

PATIENT
  Sex: Female
  Weight: 45.7 kg

DRUGS (1)
  1. NEXPLANON [Suspect]
     Active Substance: ETONOGESTREL
     Indication: Contraception
     Dosage: 1 IMPLANT (68 MG) IN THE LEFT ARM
     Route: 059
     Dates: start: 20220513, end: 20220811

REACTIONS (4)
  - Device embolisation [Recovered/Resolved]
  - Surgery [Unknown]
  - Complication associated with device [Recovered/Resolved]
  - Menstrual disorder [Recovering/Resolving]

NARRATIVE: CASE EVENT DATE: 20220101
